FAERS Safety Report 9999030 (Version 1)
Quarter: 2014Q1

REPORT INFORMATION
  Report Type: Spontaneous
  Country: US (occurrence: None)
  Receive Date: 20140311
  Receipt Date: 20140311
  Transmission Date: 20141002
  Serious: Yes (Hospitalization)
  Sender: FDA-Public Use
  Company Number: None

PATIENT
  Age: 71 Year
  Sex: Male
  Weight: 107 kg

DRUGS (9)
  1. VICTOZA [Suspect]
     Indication: TYPE 2 DIABETES MELLITUS
     Route: 058
  2. ASPIRIN [Concomitant]
  3. FENOFIBRATE [Concomitant]
  4. INSULIN GLARGINE [Concomitant]
  5. NIFEDIPINE [Concomitant]
  6. NIACIN ER [Concomitant]
  7. OMEPRAZOLE [Concomitant]
  8. ADVAIR DISKUS [Concomitant]
  9. TESTOSTERONE [Concomitant]

REACTIONS (1)
  - Pancreatitis acute [None]
